FAERS Safety Report 10436226 (Version 2)
Quarter: 2014Q3

REPORT INFORMATION
  Report Type: Spontaneous
  Country: DK (occurrence: DK)
  Receive Date: 20140908
  Receipt Date: 20140908
  Transmission Date: 20150326
  Serious: Yes (Hospitalization)
  Sender: FDA-Public Use
  Company Number: DK-NOVOPROD-379239

PATIENT
  Age: 79 Year
  Sex: Male

DRUGS (2)
  1. INSULATARD FLEXPEN [Suspect]
     Active Substance: INSULIN HUMAN
     Indication: DIABETES MELLITUS
     Dosage: 20 IE MORNING + 6 IE EVENING
     Route: 058
     Dates: start: 20130125, end: 20130521
  2. INSULATARD FLEXPEN [Suspect]
     Active Substance: INSULIN HUMAN
     Dosage: 12 IE, QD
     Dates: start: 20130524

REACTIONS (2)
  - Hypoglycaemia [Recovered/Resolved]
  - Confusional state [Recovered/Resolved]

NARRATIVE: CASE EVENT DATE: 20130519
